FAERS Safety Report 8058705-X (Version None)
Quarter: 2012Q1

REPORT INFORMATION
  Report Type: 
  Country: None (occurrence: None)
  Receive Date: 20120120
  Receipt Date: 20120117
  Transmission Date: 20120608
  Serious: No
  Sender: FDA-Public Use
  Company Number: US-PFIZER INC-2012007600

PATIENT
  Sex: Female
  Weight: 90.703 kg

DRUGS (2)
  1. FLECTOR [Suspect]
     Indication: BACK PAIN
     Dosage: UNK
     Route: 062
     Dates: start: 20110301, end: 20110901
  2. LIDOCAINE [Concomitant]
     Indication: PAIN
     Dosage: UNK

REACTIONS (6)
  - ORAL PRURITUS [None]
  - PARAESTHESIA [None]
  - LUNG DISORDER [None]
  - EYE IRRITATION [None]
  - PARAESTHESIA ORAL [None]
  - PRURITUS [None]
